FAERS Safety Report 9145851 (Version 2)
Quarter: 2013Q1

REPORT INFORMATION
  Report Type: Spontaneous
  Country: US (occurrence: US)
  Receive Date: 20130307
  Receipt Date: 20130319
  Transmission Date: 20140127
  Serious: No
  Sender: FDA-Public Use
  Company Number: US-BAYER-2013-028831

PATIENT
  Age: 52 Year
  Sex: Female

DRUGS (2)
  1. CLIMARA PRO [Suspect]
     Indication: HOT FLUSH
     Dosage: ONE PATCH WEEKLY
     Route: 062
     Dates: start: 20130226, end: 20130302
  2. CLIMARA PRO [Suspect]
     Indication: MENOPAUSE

REACTIONS (3)
  - Product adhesion issue [None]
  - Application site reaction [Not Recovered/Not Resolved]
  - Application site rash [Not Recovered/Not Resolved]
